FAERS Safety Report 7849896-1 (Version None)
Quarter: 2011Q4

REPORT INFORMATION
  Report Type: 
  Country: None (occurrence: None)
  Receive Date: 20111026
  Receipt Date: 20110131
  Transmission Date: 20120403
  Serious: No
  Sender: FDA-Public Use
  Company Number: US-MYLANLABS-2011S1002315

PATIENT
  Age: 76 Year
  Sex: Male
  Weight: 102.06 kg

DRUGS (9)
  1. NICOTINE POLACRILEX [Suspect]
     Indication: NICOTINE DEPENDENCE
     Route: 002
     Dates: start: 20100701
  2. PRAVASTATIN SODIUM [Suspect]
     Indication: BLOOD CHOLESTEROL INCREASED
     Route: 048
     Dates: start: 19990101
  3. FOLIC ACID [Suspect]
     Route: 048
  4. ATROVENT [Suspect]
     Indication: CHRONIC OBSTRUCTIVE PULMONARY DISEASE
     Route: 055
  5. METOPROLOL TARTRATE [Suspect]
     Indication: CARDIAC DISORDER
     Route: 048
     Dates: start: 19990101
  6. FUROSEMIDE [Suspect]
     Route: 048
     Dates: start: 19990101
  7. VITAMIN D [Suspect]
     Route: 048
     Dates: start: 19990101
  8. WARFARIN SODIUM [Suspect]
     Indication: ANTICOAGULANT THERAPY
     Route: 048
     Dates: start: 19990101
  9. SYMBICORT [Suspect]
     Indication: CHRONIC OBSTRUCTIVE PULMONARY DISEASE
     Route: 055

REACTIONS (4)
  - SKIN ATROPHY [None]
  - SKIN WRINKLING [None]
  - LIPOATROPHY [None]
  - LACERATION [None]
